FAERS Safety Report 24126205 (Version 1)
Quarter: 2024Q3

REPORT INFORMATION
  Report Type: Spontaneous
  Country: US (occurrence: US)
  Receive Date: 20240723
  Receipt Date: 20240723
  Transmission Date: 20241017
  Serious: Yes (Hospitalization, Other)
  Sender: BIOLOGICAL E.
  Company Number: US-BELUSA-2024BELLIT0083

PATIENT

DRUGS (1)
  1. HEPARIN SODIUM [Suspect]
     Active Substance: HEPARIN SODIUM
     Indication: Portal vein thrombosis
     Dosage: FOR 4 HOURS
     Route: 065

REACTIONS (1)
  - Splenic rupture [Recovered/Resolved]
